FAERS Safety Report 18941811 (Version 1)
Quarter: 2021Q1

REPORT INFORMATION
  Report Type: Report from Study
  Country: RU (occurrence: RU)
  Receive Date: 20210225
  Receipt Date: 20210225
  Transmission Date: 20210420
  Serious: Yes (Hospitalization, Other)
  Sender: FDA-Public Use
  Company Number: RU-INCYTE CORPORATION-2020IN012124

PATIENT

DRUGS (2)
  1. JAKAVI [Suspect]
     Active Substance: RUXOLITINIB
     Indication: GRAFT VERSUS HOST DISEASE
     Dosage: 15 MG, BID
     Route: 048
     Dates: start: 201809, end: 20200616
  2. JAKAVI [Suspect]
     Active Substance: RUXOLITINIB
     Indication: MYELOFIBROSIS
     Dosage: 10 MG (PER DAY)
     Route: 048
     Dates: end: 20200615

REACTIONS (8)
  - Loss of consciousness [Unknown]
  - Haemoglobin decreased [Unknown]
  - Transplant dysfunction [Recovering/Resolving]
  - Discoloured vomit [Unknown]
  - Transaminases increased [Unknown]
  - Splenomegaly [Unknown]
  - Thrombocytopenia [Unknown]
  - Immunosuppression [Unknown]

NARRATIVE: CASE EVENT DATE: 202001
